FAERS Safety Report 19728972 (Version 1)
Quarter: 2021Q3

REPORT INFORMATION
  Report Type: Spontaneous
  Country: IT (occurrence: IT)
  Receive Date: 20210820
  Receipt Date: 20210820
  Transmission Date: 20211014
  Serious: Yes (Hospitalization)
  Sender: FDA-Public Use
  Company Number: IT-ALVOGEN-2021-ALVOGEN-117354

PATIENT
  Age: 82 Year
  Sex: Female

DRUGS (5)
  1. DOBETIN [Concomitant]
     Indication: PRODUCT USED FOR UNKNOWN INDICATION
     Route: 048
  2. EUTIROX [Concomitant]
     Active Substance: LEVOTHYROXINE SODIUM
     Indication: HYPOTHYROIDISM
     Route: 048
  3. LORAZEPAM. [Concomitant]
     Active Substance: LORAZEPAM
     Indication: PRODUCT USED FOR UNKNOWN INDICATION
     Route: 048
  4. CYANOCOBALAMIN/LECITHIN/LIDOCAINE HYDROCHLORIDE [Concomitant]
     Indication: PRODUCT USED FOR UNKNOWN INDICATION
     Dosage: 1000 A12 MG+1 MG/2 ML SOLUTION INJECTABLE FOR USE IN
     Dates: start: 20210625
  5. TENORETIC [Suspect]
     Active Substance: ATENOLOL\CHLORTHALIDONE
     Indication: HYPERTENSIVE HEART DISEASE
     Dosage: 50 MG, 12.5 MG TABLETS 1 DF DAILY
     Route: 048

REACTIONS (7)
  - Clonus [Recovering/Resolving]
  - Asthenia [Recovering/Resolving]
  - Sopor [Recovering/Resolving]
  - Hyponatraemia [Recovering/Resolving]
  - Malaise [Recovering/Resolving]
  - Hypokalaemia [Recovering/Resolving]
  - Loss of consciousness [Recovering/Resolving]

NARRATIVE: CASE EVENT DATE: 20210701
